FAERS Safety Report 5206443-0 (Version None)
Quarter: 2007Q1

REPORT INFORMATION
  Report Type: 
  Country: None (occurrence: None)
  Receive Date: 20070111
  Receipt Date: 20070104
  Transmission Date: 20070707
  Serious: Yes (Other)
  Sender: FDA-Public Use
  Company Number: US-PFIZER INC-2007002146

PATIENT

DRUGS (1)
  1. BEXTRA [Suspect]
     Dates: start: 20040801, end: 20041001

REACTIONS (1)
  - CEREBROVASCULAR ACCIDENT [None]
